FAERS Safety Report 12313165 (Version 2)
Quarter: 2016Q2

REPORT INFORMATION
  Report Type: Spontaneous
  Country: US (occurrence: US)
  Receive Date: 20160428
  Receipt Date: 20160613
  Transmission Date: 20160815
  Serious: Yes (Other)
  Sender: FDA-Public Use
  Company Number: US-TEVA-655117ACC

PATIENT
  Age: 29 Year
  Sex: Female
  Weight: 60.38 kg

DRUGS (3)
  1. CHLORELLA [Concomitant]
     Indication: SUPPLEMENTATION THERAPY
  2. PARAGARD T 380A [Suspect]
     Active Substance: COPPER
     Indication: CONTRACEPTION
     Dates: start: 20141003
  3. VITAMINS D, C AND E [Concomitant]
     Indication: SUPPLEMENTATION THERAPY

REACTIONS (2)
  - Device dislocation [Not Recovered/Not Resolved]
  - Discomfort [Not Recovered/Not Resolved]

NARRATIVE: CASE EVENT DATE: 20160415
